FAERS Safety Report 8375550-6 (Version None)
Quarter: 2012Q1

REPORT INFORMATION
  Report Type: 
  Country: None (occurrence: None)
  Receive Date: 20120323
  Receipt Date: 20110407
  Transmission Date: 20120608
  Serious: Yes (Other)
  Sender: FDA-Public Use
  Company Number: 163-21880-11020964

PATIENT
  Sex: Female

DRUGS (2)
  1. REVLIMID [Suspect]
     Indication: MULTIPLE MYELOMA
     Dosage: 5 MG, QD X 21 DAYS, PO, 5 MG, 1 IN 1 D, PO
     Route: 048
     Dates: start: 20100501, end: 20110101
  2. REVLIMID [Suspect]
     Indication: MULTIPLE MYELOMA
     Dosage: 5 MG, QD X 21 DAYS, PO, 5 MG, 1 IN 1 D, PO
     Route: 048
     Dates: start: 20071024, end: 20100501

REACTIONS (5)
  - MULTIPLE MYELOMA [None]
  - FATIGUE [None]
  - FULL BLOOD COUNT INCREASED [None]
  - DRUG INEFFECTIVE [None]
  - RENAL FAILURE [None]
